FAERS Safety Report 19928907 (Version 1)
Quarter: 2021Q4

REPORT INFORMATION
  Report Type: Report from Study
  Country: ZA (occurrence: ZA)
  Receive Date: 20211007
  Receipt Date: 20211007
  Transmission Date: 20220303
  Serious: Yes (Hospitalization)
  Sender: FDA-Public Use
  Company Number: 2021A756365

PATIENT
  Age: 70 Year
  Sex: Female

DRUGS (4)
  1. BUDESONIDE\FORMOTEROL FUMARATE DIHYDRATE [Suspect]
     Active Substance: BUDESONIDE\FORMOTEROL FUMARATE DIHYDRATE
     Indication: Asthma
     Dosage: 160 UG/ DAILY160UG/INHAL DAILY
     Route: 055
  2. VIMOVO [Concomitant]
     Active Substance: ESOMEPRAZOLE MAGNESIUM\NAPROXEN
     Indication: Pain
     Dosage: 20.0MG AS REQUIRED
     Route: 048
  3. VIMOVO [Concomitant]
     Active Substance: ESOMEPRAZOLE MAGNESIUM\NAPROXEN
     Indication: Inflammation
     Dosage: 20.0MG AS REQUIRED
     Route: 048
  4. STILPANE [Concomitant]
     Indication: Pain
     Dosage: AS REQUIRED
     Route: 048

REACTIONS (1)
  - Back disorder [Unknown]
